FAERS Safety Report 9159983 (Version 2)
Quarter: 2013Q1

REPORT INFORMATION
  Report Type: Spontaneous
  Country: US (occurrence: US)
  Receive Date: 20130313
  Receipt Date: 20130314
  Transmission Date: 20140127
  Serious: Yes (Other)
  Sender: FDA-Public Use
  Company Number: US-BAYER-2013-029291

PATIENT
  Age: 58 Year
  Sex: Male
  Weight: 109 kg

DRUGS (14)
  1. CAMPHO-PHENIQUE [Suspect]
     Dosage: 1 DF, ONCE
     Route: 047
     Dates: start: 20130304, end: 20130304
  2. NASONEX [Concomitant]
  3. LORATADINE [Concomitant]
  4. ALBUTEROL [Concomitant]
  5. LEVEMIR [Concomitant]
  6. METFORMIN [Concomitant]
  7. LISINOPRIL [Concomitant]
  8. XANAX [Concomitant]
  9. FLEXERIL [Concomitant]
  10. HYDROCODONE [Concomitant]
  11. SUDAFED [Concomitant]
  12. TRICOR [Concomitant]
  13. SINGULAIR [Concomitant]
  14. NEXIUM [Concomitant]

REACTIONS (8)
  - Wrong drug administered [None]
  - Incorrect route of drug administration [None]
  - Burning sensation [Not Recovered/Not Resolved]
  - Eye swelling [Recovered/Resolved]
  - Flushing [None]
  - Lacrimation increased [Recovered/Resolved]
  - Periorbital oedema [Recovered/Resolved]
  - Eye pain [Not Recovered/Not Resolved]
